FAERS Safety Report 15539483 (Version 1)
Quarter: 2018Q4

REPORT INFORMATION
  Report Type: Spontaneous
  Country: ES (occurrence: ES)
  Receive Date: 20181023
  Receipt Date: 20181023
  Transmission Date: 20190205
  Serious: Yes (Other)
  Sender: FDA-Public Use
  Company Number: ES-TEVA-2018-ES-967539

PATIENT
  Age: 70 Year
  Sex: Male
  Weight: 65.5 kg

DRUGS (2)
  1. PREDNISONE. [Suspect]
     Active Substance: PREDNISONE
     Indication: POLYMYOSITIS
     Dosage: 40 MILLIGRAM DAILY;
     Route: 048
     Dates: start: 20180329
  2. RIXATHON 500 MG CONCENTRADO PARA SOLUCION PARA PERFUSION, 1 VIAL DE 50 [Interacting]
     Active Substance: RITUXIMAB
     Indication: POLYMYOSITIS
     Route: 042
     Dates: start: 20180326

REACTIONS (3)
  - Drug interaction [Unknown]
  - Cellulitis streptococcal [Recovered/Resolved]
  - Herpes simplex [Recovered/Resolved]

NARRATIVE: CASE EVENT DATE: 20180417
